FAERS Safety Report 5895161-1 (Version None)
Quarter: 2008Q3

REPORT INFORMATION
  Report Type: 
  Country: None (occurrence: None)
  Receive Date: 20080924
  Receipt Date: 20080911
  Transmission Date: 20090109
  Serious: Yes (Other)
  Sender: FDA-Public Use
  Company Number: US-PFIZER INC-2008077662

PATIENT
  Sex: Female

DRUGS (2)
  1. CHANTIX [Suspect]
     Indication: EX-TOBACCO USER
     Dates: start: 20080701
  2. TYLENOL (CAPLET) [Concomitant]

REACTIONS (6)
  - DEPRESSED MOOD [None]
  - HEADACHE [None]
  - HYPERAESTHESIA [None]
  - IRRITABILITY [None]
  - NAUSEA [None]
  - SENSATION OF PRESSURE [None]
